FAERS Safety Report 4388532-6 (Version None)
Quarter: 2004Q2

REPORT INFORMATION
  Report Type: 
  Country: None (occurrence: None)
  Receive Date: 20040625
  Receipt Date: 20040616
  Transmission Date: 20050107
  Serious: Yes (Hospitalization)
  Sender: FDA-Public Use
  Company Number: JP-JNJFOC-20040603763

PATIENT
  Age: 37 Year
  Sex: Male

DRUGS (2)
  1. LEVOFLOXACIN [Suspect]
     Indication: BRONCHITIS
     Dosage: 1000 MG, 1 IN 1 DAY, ORAL
     Route: 048
     Dates: start: 20031108, end: 20031123
  2. PNEUMOREL (FENSPIRIDE HYDROCHLORIDE) [Concomitant]

REACTIONS (3)
  - HEADACHE [None]
  - PAPILLOEDEMA [None]
  - VISUAL ACUITY REDUCED [None]
